FAERS Safety Report 21358261 (Version 1)
Quarter: 2022Q3

REPORT INFORMATION
  Report Type: Spontaneous
  Country: DE (occurrence: DE)
  Receive Date: 20220921
  Receipt Date: 20220921
  Transmission Date: 20221027
  Serious: Yes (Other)
  Sender: FDA-Public Use
  Company Number: DE-BRISTOL-MYERS SQUIBB COMPANY-2022-108201

PATIENT
  Age: 73 Year
  Sex: Male
  Weight: 72 kg

DRUGS (2)
  1. ELIQUIS [Suspect]
     Active Substance: APIXABAN
     Indication: Cerebrovascular accident
     Route: 065
  2. ELIQUIS [Suspect]
     Active Substance: APIXABAN
     Indication: Cardiac failure

REACTIONS (2)
  - Cardiac output decreased [Unknown]
  - Pneumonia [Unknown]
